FAERS Safety Report 25238104 (Version 1)
Quarter: 2025Q2

REPORT INFORMATION
  Report Type: Spontaneous
  Country: US (occurrence: US)
  Receive Date: 20250425
  Receipt Date: 20250425
  Transmission Date: 20250716
  Serious: Yes (Death)
  Sender: R-PHARM US LLC
  Company Number: US-R-PHARM US LLC-2025RPM00005

PATIENT
  Age: 49 Year
  Sex: Female

DRUGS (1)
  1. IXEMPRA [Suspect]
     Active Substance: IXABEPILONE
     Indication: Breast cancer metastatic
     Dosage: 78.4 MG, EVERY 3 WEEKS
     Route: 042
     Dates: start: 20250403, end: 20250403

REACTIONS (1)
  - Death [Fatal]

NARRATIVE: CASE EVENT DATE: 20250401
